FAERS Safety Report 5352467-2 (Version None)
Quarter: 2007Q2

REPORT INFORMATION
  Report Type: 
  Country: None (occurrence: None)
  Receive Date: 20070611
  Receipt Date: 20070601
  Transmission Date: 20071010
  Serious: Yes (Other)
  Sender: FDA-Public Use
  Company Number: B0460970A

PATIENT
  Age: 6 Year
  Sex: Female
  Weight: 22.8 kg

DRUGS (1)
  1. AUGMENTIN '125' [Suspect]
     Indication: INFLUENZA
     Dosage: 4.5ML THREE TIMES PER DAY
     Route: 048
     Dates: start: 20070223, end: 20070224

REACTIONS (4)
  - ABNORMAL BEHAVIOUR [None]
  - AGGRESSION [None]
  - CONFUSIONAL STATE [None]
  - PSYCHOMOTOR HYPERACTIVITY [None]
